FAERS Safety Report 6439749-8 (Version None)
Quarter: 2009Q4

REPORT INFORMATION
  Report Type: 
  Country: None (occurrence: None)
  Receive Date: 20091113
  Receipt Date: 20091104
  Transmission Date: 20100525
  Serious: Yes (Hospitalization)
  Sender: FDA-Public Use
  Company Number: BG-ABBOTT-09P-022-0606950-00

PATIENT
  Sex: Male
  Weight: 66 kg

DRUGS (8)
  1. TRILIPIX [Suspect]
     Indication: MACULAR OEDEMA
     Route: 048
     Dates: start: 20090402, end: 20091016
  2. ENPRIL [Concomitant]
     Indication: HYPERTENSION
     Route: 048
     Dates: start: 20080206
  3. MICARDIS [Concomitant]
     Indication: HYPERTENSION
     Route: 048
     Dates: start: 20061222
  4. INSULATARD PENFIL [Concomitant]
     Indication: TYPE 2 DIABETES MELLITUS
     Dosage: 32 + 22 E
     Route: 058
     Dates: start: 20080827
  5. AGAPURIN [Concomitant]
     Indication: VASODILATATION
     Route: 048
     Dates: start: 20080508
  6. CHLIPHASOLIN [Concomitant]
     Indication: HYPERTENSION
     Dates: start: 20070424
  7. LODOZ [Concomitant]
     Indication: HYPERTENSION
     Dates: start: 20080304
  8. METIZOL [Concomitant]
     Indication: HYPERTHYROIDISM
     Dates: start: 20080304

REACTIONS (1)
  - RENAL DISORDER [None]
